FAERS Safety Report 6043656-2 (Version None)
Quarter: 2009Q1

REPORT INFORMATION
  Report Type: 
  Country: None (occurrence: None)
  Receive Date: 20090120
  Receipt Date: 20090108
  Transmission Date: 20090719
  Serious: Yes (Hospitalization)
  Sender: FDA-Public Use
  Company Number: CH-BRISTOL-MYERS SQUIBB COMPANY-14474464

PATIENT
  Sex: Male

DRUGS (1)
  1. ERBITUX [Suspect]

REACTIONS (3)
  - ANAEMIA [None]
  - GASTRIC ULCER [None]
  - NAIL INFECTION [None]
